FAERS Safety Report 5770056-2 (Version None)
Quarter: 2008Q2

REPORT INFORMATION
  Report Type: 
  Country: None (occurrence: None)
  Receive Date: 20080613
  Receipt Date: 20080416
  Transmission Date: 20081010
  Serious: No
  Sender: FDA-Public Use
  Company Number: US-ABBOTT-08P-163-0447686-00

PATIENT
  Sex: Male
  Weight: 108.96 kg

DRUGS (5)
  1. HUMIRA [Suspect]
     Indication: PSORIASIS
     Route: 058
     Dates: start: 20080318
  2. QUINAPRIL [Concomitant]
     Indication: BLOOD PRESSURE
     Route: 048
  3. GLYPARAMIDE [Concomitant]
     Indication: DIABETES MELLITUS
     Route: 048
  4. METFORMIN HCL [Concomitant]
     Indication: DIABETES MELLITUS
     Route: 048
  5. TOPICAL STERIODS [Concomitant]
     Indication: PSORIASIS
     Route: 061

REACTIONS (4)
  - AXILLARY PAIN [None]
  - HEADACHE [None]
  - OEDEMA PERIPHERAL [None]
  - PYREXIA [None]
